FAERS Safety Report 4347734-5 (Version None)
Quarter: 2004Q1

REPORT INFORMATION
  Report Type: 
  Country: None (occurrence: None)
  Receive Date: 20040325
  Receipt Date: 20031211
  Transmission Date: 20041129
  Serious: No
  Sender: FDA-Public Use
  Company Number: USA031254538

PATIENT
  Age: 81 Year
  Sex: Female

DRUGS (3)
  1. FORTEO [Suspect]
     Indication: OSTEOPOROSIS
     Dates: start: 20031201
  2. NORVASC [Concomitant]
  3. NEXIUM (ESOEPRAZOLE) [Concomitant]

REACTIONS (1)
  - INFLUENZA LIKE ILLNESS [None]
